FAERS Safety Report 6805476-8 (Version None)
Quarter: 2010Q2

REPORT INFORMATION
  Report Type: 
  Country: None (occurrence: None)
  Receive Date: 20100628
  Receipt Date: 20071220
  Transmission Date: 20101027
  Serious: No
  Sender: FDA-Public Use
  Company Number: US-PFIZER INC-2007107527

PATIENT
  Sex: Female
  Weight: 71.67 kg

DRUGS (5)
  1. XALATAN [Suspect]
     Indication: GLAUCOMA
     Dates: start: 20060101
  2. MONTELUKAST SODIUM [Concomitant]
     Indication: ASTHMA
  3. ESTRADIOL [Concomitant]
  4. PROGESTERONE [Concomitant]
  5. VITAMINS [Concomitant]

REACTIONS (3)
  - POOR QUALITY SLEEP [None]
  - RASH PRURITIC [None]
  - TRI-IODOTHYRONINE DECREASED [None]
